FAERS Safety Report 25015191 (Version 3)
Quarter: 2025Q1

REPORT INFORMATION
  Report Type: Spontaneous
  Country: JP (occurrence: JP)
  Receive Date: 20250226
  Receipt Date: 20250319
  Transmission Date: 20250409
  Serious: Yes (Hospitalization, Other)
  Sender: BRISTOL-MYERS SQUIBB COMPANY
  Company Number: JP-BRISTOL-MYERS SQUIBB COMPANY-2025-026653

PATIENT
  Age: 76 Year
  Sex: Male

DRUGS (2)
  1. YERVOY [Suspect]
     Active Substance: IPILIMUMAB
     Indication: Squamous cell carcinoma of lung
     Route: 041
  2. OPDIVO [Suspect]
     Active Substance: NIVOLUMAB
     Indication: Squamous cell carcinoma of lung
     Route: 041

REACTIONS (8)
  - Cytokine release syndrome [Recovering/Resolving]
  - Malaise [Recovering/Resolving]
  - Hypercalcaemia [Recovered/Resolved]
  - Pyrexia [Recovering/Resolving]
  - Altered state of consciousness [Recovering/Resolving]
  - Renal impairment [Recovering/Resolving]
  - C-reactive protein increased [Recovering/Resolving]
  - Lung opacity [Recovering/Resolving]
